FAERS Safety Report 26166146 (Version 1)
Quarter: 2025Q4

REPORT INFORMATION
  Report Type: Spontaneous
  Country: US (occurrence: US)
  Receive Date: 20251216
  Receipt Date: 20251216
  Transmission Date: 20260118
  Serious: No
  Sender: AMGEN
  Company Number: US-AMGEN-USASP2025243887

PATIENT
  Sex: Male

DRUGS (1)
  1. WEZLANA [Suspect]
     Active Substance: USTEKINUMAB-AUUB
     Indication: Product used for unknown indication
     Dosage: 90 MILLIGRAM (STRENGTH: 90MG/ML)
     Route: 058

REACTIONS (2)
  - Haemorrhage [Unknown]
  - Pain [Unknown]
